FAERS Safety Report 10154142 (Version 1)
Quarter: 2014Q2

REPORT INFORMATION
  Report Type: Spontaneous
  Country: GB (occurrence: GB)
  Receive Date: 20140506
  Receipt Date: 20140506
  Transmission Date: 20141212
  Serious: Yes (Hospitalization, Other)
  Sender: FDA-Public Use
  Company Number: GB-JNJFOC-20140417188

PATIENT
  Age: 55 Year
  Sex: Female

DRUGS (15)
  1. DOXORUBICIN HYDROCHLORIDE [Suspect]
     Indication: DIFFUSE LARGE B-CELL LYMPHOMA
     Route: 042
     Dates: start: 20100225, end: 20100415
  2. AVASTIN [Suspect]
     Indication: DIFFUSE LARGE B-CELL LYMPHOMA
     Route: 042
     Dates: start: 20100225, end: 20100415
  3. CYCLOPHOSPHAMIDE [Suspect]
     Indication: DIFFUSE LARGE B-CELL LYMPHOMA
     Route: 042
     Dates: start: 20100225
  4. MABTHERA [Suspect]
     Indication: DIFFUSE LARGE B-CELL LYMPHOMA
     Route: 042
     Dates: start: 20100225
  5. PREDNISOLONE [Suspect]
     Indication: DIFFUSE LARGE B-CELL LYMPHOMA
     Dosage: DAYS 1-5
     Route: 048
     Dates: start: 20100225
  6. VINCRISTINE [Suspect]
     Indication: DIFFUSE LARGE B-CELL LYMPHOMA
     Route: 042
     Dates: start: 20100225
  7. ALLOPURINOL [Concomitant]
     Route: 065
  8. CALCIUM ALGINATE [Concomitant]
     Route: 065
  9. CARBOXYMETHYLCELLULOSE SODIUM [Concomitant]
     Route: 065
  10. CO-CODAMOL [Concomitant]
     Route: 065
  11. CO-TRIMOXAZOLE [Concomitant]
     Route: 065
  12. GABAPENTIN [Concomitant]
     Route: 065
  13. IBUPROFEN [Concomitant]
     Route: 065
  14. LANSOPRAZOLE [Concomitant]
     Route: 065
  15. RAMIPRIL [Concomitant]
     Route: 065

REACTIONS (5)
  - Left ventricular dysfunction [Recovered/Resolved]
  - Vomiting [Recovered/Resolved with Sequelae]
  - Hypertension [Recovered/Resolved with Sequelae]
  - Fracture [Unknown]
  - Diarrhoea [Unknown]
